FAERS Safety Report 10738574 (Version 1)
Quarter: 2015Q1

REPORT INFORMATION
  Report Type: Spontaneous
  Country: US (occurrence: None)
  Receive Date: 20150122
  Receipt Date: 20150122
  Transmission Date: 20150721
  Serious: Yes (Other)
  Sender: FDA-Public Use
  Company Number: None

PATIENT
  Age: 33 Year
  Sex: Male

DRUGS (8)
  1. TECFIDERA [Suspect]
     Active Substance: DIMETHYL FUMARATE
     Indication: MULTIPLE SCLEROSIS
     Dosage: 1 PILL
     Route: 048
     Dates: start: 20150117, end: 20150121
  2. CITALOPRAM [Concomitant]
     Active Substance: CITALOPRAM HYDROBROMIDE
  3. CLONAZEPAM. [Concomitant]
     Active Substance: CLONAZEPAM
  4. GABAPENTIN. [Concomitant]
     Active Substance: GABAPENTIN
  5. OXYCODONE [Concomitant]
     Active Substance: OXYCODONE
  6. BACLOFEN. [Concomitant]
     Active Substance: BACLOFEN
  7. DULOXETINE [Concomitant]
     Active Substance: DULOXETINE
  8. MELOXICAM. [Concomitant]
     Active Substance: MELOXICAM

REACTIONS (2)
  - Musculoskeletal stiffness [None]
  - Movement disorder [None]

NARRATIVE: CASE EVENT DATE: 20150121
